FAERS Safety Report 5933538-6 (Version None)
Quarter: 2008Q4

REPORT INFORMATION
  Report Type: 
  Country: None (occurrence: None)
  Receive Date: 20081024
  Receipt Date: 20081013
  Transmission Date: 20090506
  Serious: Yes (Hospitalization, Other)
  Sender: FDA-Public Use
  Company Number: 2008BI020907

PATIENT
  Age: 44 Year
  Sex: Male
  Weight: 80 kg

DRUGS (1)
  1. TYSABRI [Suspect]
     Indication: RELAPSING-REMITTING MULTIPLE SCLEROSIS
     Dosage: 300 MG;QM; IV
     Route: 042
     Dates: start: 20080101, end: 20080601

REACTIONS (13)
  - BRAIN STEM SYNDROME [None]
  - CEREBRAL ATROPHY [None]
  - CHILLS [None]
  - CONDITION AGGRAVATED [None]
  - DEMYELINATION [None]
  - DISEASE PROGRESSION [None]
  - ELECTROENCEPHALOGRAM ABNORMAL [None]
  - ENCEPHALOMYELITIS [None]
  - LUMBAR PUNCTURE ABNORMAL [None]
  - MUSCLE SPASTICITY [None]
  - NO THERAPEUTIC RESPONSE [None]
  - STAPHYLOCOCCAL INFECTION [None]
  - TREMOR [None]
